FAERS Safety Report 7687162-8 (Version None)
Quarter: 2011Q3

REPORT INFORMATION
  Report Type: 
  Country: None (occurrence: None)
  Receive Date: 20110816
  Receipt Date: 20110816
  Transmission Date: 20111222
  Serious: Yes (Death, Life-Threatening, Hospitalization, Other)
  Sender: FDA-Public Use
  Company Number: PHHO2010US13188

PATIENT
  Sex: Male
  Weight: 72.3 kg

DRUGS (9)
  1. DIGOXIN [Concomitant]
  2. DIURETICS [Concomitant]
  3. JANUMET [Concomitant]
  4. REVATIO [Concomitant]
  5. FLOLAN [Concomitant]
  6. ZAROXOLYN [Concomitant]
  7. IMATINIB MESYLATE [Suspect]
     Indication: PULMONARY ARTERIAL HYPERTENSION
     Dosage: 100 MG, UNK
     Route: 048
     Dates: start: 20100811, end: 20100824
  8. IMATINIB MESYLATE [Suspect]
     Dosage: 400MG/DAY (BLINDED)
     Route: 048
     Dates: start: 20100825, end: 20100826
  9. LETAIRIS [Concomitant]

REACTIONS (27)
  - CARDIAC ARREST [None]
  - PULMONARY HYPERTENSION [None]
  - VENTRICULAR HYPERTROPHY [None]
  - DYSPNOEA [None]
  - ANAEMIA [None]
  - ANURIA [None]
  - ABDOMINAL DISTENSION [None]
  - ASCITES [None]
  - DIALYSIS [None]
  - PANCYTOPENIA [None]
  - PULMONARY OEDEMA [None]
  - PLEURAL EFFUSION [None]
  - ABDOMINAL CAVITY DRAINAGE [None]
  - FLUID RETENTION [None]
  - PANCREATITIS CHRONIC [None]
  - RIGHT ATRIAL DILATATION [None]
  - NEPHROLITHIASIS [None]
  - DILATATION VENTRICULAR [None]
  - VENTRICULAR DYSFUNCTION [None]
  - TRICUSPID VALVE INCOMPETENCE [None]
  - OEDEMA PERIPHERAL [None]
  - OEDEMA [None]
  - RIGHT VENTRICULAR FAILURE [None]
  - RENAL FAILURE ACUTE [None]
  - THROMBOCYTOPENIA [None]
  - RENAL CYST [None]
  - SPLENOMEGALY [None]
